FAERS Safety Report 8787356 (Version 1)
Quarter: 2012Q4

REPORT INFORMATION
  Report Type: Report from Study
  Country: US (occurrence: US)
  Receive Date: 20120914
  Receipt Date: 20120914
  Transmission Date: 20130627
  Serious: No
  Sender: FDA-Public Use
  Company Number: US-VERTEX PHARMACEUTICAL INC.-AE-2012-010901

PATIENT
  Sex: Male
  Weight: 76.36 kg

DRUGS (1)
  1. INCIVEK [Suspect]
     Indication: HEPATITIS C
     Route: 048
     Dates: start: 20120622

REACTIONS (3)
  - Mood swings [Unknown]
  - Apathy [Unknown]
  - Fatigue [Unknown]
